FAERS Safety Report 5479372-5 (Version None)
Quarter: 2007Q4

REPORT INFORMATION
  Report Type: 
  Country: None (occurrence: None)
  Receive Date: 20071008
  Receipt Date: 20070926
  Transmission Date: 20080405
  Serious: Yes (Life-Threatening, Hospitalization)
  Sender: FDA-Public Use
  Company Number: GB-AMGEN-US240309

PATIENT
  Sex: Female

DRUGS (6)
  1. ENBREL [Suspect]
     Indication: RHEUMATOID ARTHRITIS
     Route: 058
     Dates: start: 20070515, end: 20070821
  2. PREMARIN [Concomitant]
     Dosage: UNKNOWN
     Route: 065
  3. AMLODIPINE [Concomitant]
     Route: 048
  4. PARACETAMOL [Concomitant]
     Dosage: 1G 4 TIMES A DAY, AS NEEDED
     Route: 065
  5. METHOTREXATE [Concomitant]
     Indication: RHEUMATOID ARTHRITIS
     Route: 048
     Dates: start: 20010703
  6. FOLIC ACID [Concomitant]
     Route: 048
     Dates: start: 20010703

REACTIONS (1)
  - HAEMORRHAGIC STROKE [None]
